FAERS Safety Report 6385444-3 (Version None)
Quarter: 2009Q4

REPORT INFORMATION
  Report Type: 
  Country: None (occurrence: None)
  Receive Date: 20091002
  Receipt Date: 20080903
  Transmission Date: 20100525
  Serious: No
  Sender: FDA-Public Use
  Company Number: US-ASTRAZENECA-2008UW18177

PATIENT
  Age: 56 Year
  Sex: Female

DRUGS (6)
  1. ARIMIDEX [Suspect]
     Indication: BREAST CANCER STAGE I
     Route: 048
     Dates: start: 20050101
  2. DYAZIDE [Concomitant]
  3. CRESTOR [Concomitant]
  4. AMBIEN [Concomitant]
  5. VITAMINS [Concomitant]
  6. CALCIUM WITH VITAMIN D. [Concomitant]

REACTIONS (6)
  - ARTHRALGIA [None]
  - BLOOD CHOLESTEROL INCREASED [None]
  - BREAST CANCER IN SITU [None]
  - HOT FLUSH [None]
  - INSOMNIA [None]
  - LIBIDO DECREASED [None]
